FAERS Safety Report 4660939-9 (Version None)
Quarter: 2005Q2

REPORT INFORMATION
  Report Type: 
  Country: None (occurrence: None)
  Receive Date: 20050511
  Receipt Date: 20050503
  Transmission Date: 20051028
  Serious: Yes (Other)
  Sender: FDA-Public Use
  Company Number: 2005070120

PATIENT
  Sex: Female

DRUGS (2)
  1. LIPITOR [Suspect]
     Indication: ILL-DEFINED DISORDER
  2. WARFARIN SODIUM [Concomitant]
     Indication: ILL-DEFINED DISORDER

REACTIONS (3)
  - BREAST DISORDER [None]
  - SKIN NECROSIS [None]
  - VASCULITIS [None]
